FAERS Safety Report 9658713 (Version 2)
Quarter: 2013Q4

REPORT INFORMATION
  Report Type: Spontaneous
  Country: US (occurrence: US)
  Receive Date: 20131030
  Receipt Date: 20131030
  Transmission Date: 20140711
  Serious: Yes (Hospitalization)
  Sender: FDA-Public Use
  Company Number: US-NAPPMUNDI-USA-2011-0066402

PATIENT
  Sex: Female

DRUGS (3)
  1. OXYCONTIN (NDA 22-272) [Suspect]
     Indication: PAIN
     Dosage: 80 MG, TID
     Route: 048
     Dates: start: 201103
  2. OXYCONTIN (NDA 22-272) [Suspect]
     Dosage: 60 MG, UNK
     Dates: start: 201104
  3. OXYCODONE HYDROCHLORIDE (SIMILAR TO NDA 22-272) [Suspect]
     Indication: PAIN
     Dosage: 30 MG, UNK
     Dates: start: 201104

REACTIONS (4)
  - Pain [Recovering/Resolving]
  - Vomiting [Unknown]
  - Chills [Unknown]
  - Drug ineffective [Unknown]
